FAERS Safety Report 9457238 (Version 1)
Quarter: 2013Q3

REPORT INFORMATION
  Report Type: Spontaneous
  Country: GB (occurrence: GB)
  Receive Date: 20130814
  Receipt Date: 20130814
  Transmission Date: 20140515
  Serious: Yes (Life-Threatening)
  Sender: FDA-Public Use
  Company Number: GB-BRISTOL-MYERS SQUIBB COMPANY-19161736

PATIENT
  Age: 48 Year
  Sex: Female
  Weight: 65.6 kg

DRUGS (3)
  1. BYETTA [Suspect]
     Indication: TYPE 2 DIABETES MELLITUS
     Route: 058
     Dates: start: 201004, end: 20130708
  2. METFORMIN [Concomitant]
  3. GLICLAZIDE [Concomitant]

REACTIONS (3)
  - Pancreatic carcinoma metastatic [Not Recovered/Not Resolved]
  - Abnormal loss of weight [Unknown]
  - Abdominal mass [Unknown]
